FAERS Safety Report 8320408-1 (Version None)
Quarter: 2012Q2

REPORT INFORMATION
  Report Type: 
  Country: None (occurrence: None)
  Receive Date: 20120426
  Receipt Date: 20120426
  Transmission Date: 20120825
  Serious: No
  Sender: FDA-Public Use
  Company Number: None

PATIENT
  Sex: Female
  Weight: 54.4316 kg

DRUGS (2)
  1. ASTEPRO [Suspect]
     Indication: SEASONAL ALLERGY
     Dates: start: 20120123, end: 20120129
  2. ASTEPRO [Suspect]
     Indication: SINUSITIS
     Dates: start: 20120123, end: 20120129

REACTIONS (6)
  - LIP SWELLING [None]
  - OCULAR HYPERAEMIA [None]
  - ERYTHEMA [None]
  - SWOLLEN TONGUE [None]
  - PHARYNGEAL OEDEMA [None]
  - RASH PRURITIC [None]
